FAERS Safety Report 9428950 (Version 1)
Quarter: 2013Q3

REPORT INFORMATION
  Report Type: Spontaneous
  Country: US (occurrence: US)
  Receive Date: 20130730
  Receipt Date: 20130730
  Transmission Date: 20140515
  Serious: Yes (Hospitalization)
  Sender: FDA-Public Use
  Company Number: US-BAYER-2013-090489

PATIENT
  Age: 25 Year
  Sex: Female
  Weight: 85.26 kg

DRUGS (11)
  1. BETASERON [Suspect]
     Dosage: 1 ML, QOD
     Route: 058
     Dates: start: 2011
  2. ZOLOFT [Concomitant]
  3. AMITRIPTYLINE [Concomitant]
  4. TRAZODONE [Concomitant]
  5. TOPIRAMATE [Concomitant]
  6. MELATONIN [Concomitant]
  7. DIAZEPAM [Concomitant]
  8. VITAMIN D [Concomitant]
  9. PHENERGAN [Concomitant]
  10. THORAZINE [Concomitant]
  11. OXYCODONE [Concomitant]

REACTIONS (3)
  - Malaise [Unknown]
  - Dehydration [Unknown]
  - Influenza like illness [Unknown]
